FAERS Safety Report 24590478 (Version 1)
Quarter: 2024Q4

REPORT INFORMATION
  Report Type: Spontaneous
  Country: US (occurrence: US)
  Receive Date: 20241107
  Receipt Date: 20241107
  Transmission Date: 20250115
  Serious: No
  Sender: EISAI
  Company Number: US-Eisai-EC-2024-163019

PATIENT
  Age: 22 Year
  Sex: Female

DRUGS (7)
  1. RUFINAMIDE [Suspect]
     Active Substance: RUFINAMIDE
     Indication: Idiopathic generalised epilepsy
     Dosage: BRAND NAME
     Route: 048
  2. RUFINAMIDE [Suspect]
     Active Substance: RUFINAMIDE
     Dosage: GENERIC
     Route: 048
  3. RUFINAMIDE [Suspect]
     Active Substance: RUFINAMIDE
     Dosage: BRAND NAME
     Route: 048
  4. CLOBAZAM [Concomitant]
     Active Substance: CLOBAZAM
  5. BRIVIACT [Concomitant]
     Active Substance: BRIVARACETAM
  6. ZINC TRACE METAL [Concomitant]
  7. XCOPRI [Concomitant]
     Active Substance: CENOBAMATE

REACTIONS (2)
  - Drug hypersensitivity [Unknown]
  - Product dose omission issue [Unknown]
